FAERS Safety Report 8771357 (Version 2)
Quarter: 2012Q4

REPORT INFORMATION
  Report Type: Report from Study
  Country: JP (occurrence: JP)
  Receive Date: 20120905
  Receipt Date: 20120924
  Transmission Date: 20130627
  Serious: Yes (Other)
  Sender: FDA-Public Use
  Company Number: JP-VERTEX PHARMACEUTICAL INC.-2012-020561

PATIENT
  Age: 63 Year
  Sex: Male

DRUGS (8)
  1. VX-950 [Suspect]
     Indication: HEPATITIS C
     Dosage: 2250 mg, qd
     Route: 048
     Dates: start: 20120326, end: 20120618
  2. RIBAVIRIN [Concomitant]
     Indication: HEPATITIS C
     Dosage: 800 mg, qd
     Route: 048
     Dates: start: 20120326, end: 20120701
  3. RIBAVIRIN [Concomitant]
     Dosage: 600 mg, qd
     Route: 048
     Dates: start: 20120702, end: 20120716
  4. RIBAVIRIN [Concomitant]
     Dosage: 800 mg, qd
     Route: 048
     Dates: start: 20120717
  5. PEGINTRON                          /01543001/ [Concomitant]
     Indication: HEPATITIS C
     Dosage: 1.5 UNK, UNK
     Route: 058
     Dates: start: 20120326, end: 20120408
  6. PEGINTRON                          /01543001/ [Concomitant]
     Dosage: 1.3 UNK, UNK
     Route: 058
     Dates: start: 20120409
  7. ZYLORIC [Concomitant]
     Dosage: 200 mg, qid
     Route: 048
     Dates: start: 20120326
  8. DOGMATYL [Concomitant]
     Dosage: 100 mg, qd
     Route: 048
     Dates: start: 20120507

REACTIONS (1)
  - Pancytopenia [Recovered/Resolved]
